FAERS Safety Report 7243411-1 (Version None)
Quarter: 2011Q1

REPORT INFORMATION
  Report Type: 
  Country: None (occurrence: None)
  Receive Date: 20110125
  Receipt Date: 20110124
  Transmission Date: 20110831
  Serious: Yes (Hospitalization)
  Sender: FDA-Public Use
  Company Number: US-B.I. PHARMACEUTICALS,INC./RIDGEFIELD-2010-BP-15019BP

PATIENT
  Age: 74 Year
  Sex: Female
  Weight: 61.23 kg

DRUGS (1)
  1. PRADAXA [Suspect]

REACTIONS (1)
  - GASTROINTESTINAL HAEMORRHAGE [None]
